FAERS Safety Report 14391588 (Version 3)
Quarter: 2018Q1

REPORT INFORMATION
  Report Type: Spontaneous
  Country: JP (occurrence: JP)
  Receive Date: 20180116
  Receipt Date: 20180226
  Transmission Date: 20180509
  Serious: Yes (Death, Other)
  Sender: FDA-Public Use
  Company Number: PHJP2018JP001041

PATIENT

DRUGS (1)
  1. SANDOSTATINA LAR IM INJECTION [Suspect]
     Active Substance: OCTREOTIDE ACETATE
     Indication: VIPOMA
     Dosage: 20 MG, UNK
     Route: 030
     Dates: start: 201712

REACTIONS (2)
  - Asphyxia [Fatal]
  - Vomiting [Unknown]

NARRATIVE: CASE EVENT DATE: 20180105
